FAERS Safety Report 9206923 (Version 1)
Quarter: 2013Q2

REPORT INFORMATION
  Report Type: Spontaneous
  Country: FR (occurrence: FR)
  Receive Date: 20130403
  Receipt Date: 20130403
  Transmission Date: 20140414
  Serious: Yes (Disabling)
  Sender: FDA-Public Use
  Company Number: FR-MERCK-1303FRA012396

PATIENT
  Age: 65 Year
  Sex: Female
  Weight: 81 kg

DRUGS (3)
  1. VIRAFERONPEG [Suspect]
     Indication: HEPATITIS C
     Dosage: 1.5 MICROGRAM, QW
     Dates: start: 20110526, end: 20110609
  2. REBETOL [Suspect]
     Indication: HEPATITIS C
     Dosage: 400 MG, TID
     Route: 048
     Dates: start: 20110526, end: 20110609
  3. COVERAM [Suspect]
     Indication: CARDIOMYOPATHY
     Dosage: 1 DF, QD
     Dates: start: 201104

REACTIONS (1)
  - Back pain [Recovered/Resolved]
